FAERS Safety Report 15051333 (Version 4)
Quarter: 2018Q4

REPORT INFORMATION
  Report Type: Spontaneous
  Country: AT (occurrence: AT)
  Receive Date: 20180622
  Receipt Date: 20181221
  Transmission Date: 20190204
  Serious: Yes (Other)
  Sender: FDA-Public Use
  Company Number: AT-TEVA-2018-AT-910127

PATIENT
  Age: 45 Year
  Sex: Female

DRUGS (4)
  1. GOSERELIN [Suspect]
     Active Substance: GOSERELIN
     Indication: BREAST CANCER METASTATIC
     Dosage: CYCLIC (ON D1 Q28D)
     Route: 058
     Dates: start: 201704
  2. DENOSUMAB [Suspect]
     Active Substance: DENOSUMAB
     Indication: BREAST CANCER METASTATIC
     Dosage: CYCLIC (ON D1 Q28D)
     Route: 058
     Dates: start: 201704
  3. IBRANCE [Suspect]
     Active Substance: PALBOCICLIB
     Indication: BREAST CANCER METASTATIC
     Dosage: CYCLIC (DAILY ON D1-21, Q28D)
     Dates: start: 201704
  4. LETROZOLE. [Suspect]
     Active Substance: LETROZOLE
     Indication: BREAST CANCER METASTATIC
     Dosage: 2.5 MILLIGRAM DAILY;
     Route: 065
     Dates: start: 201704

REACTIONS (7)
  - Neutropenia [Unknown]
  - Blood alkaline phosphatase increased [Recovering/Resolving]
  - Product use in unapproved indication [Recovering/Resolving]
  - Fatigue [Unknown]
  - Alopecia [Unknown]
  - Alanine aminotransferase increased [Recovering/Resolving]
  - Gamma-glutamyltransferase increased [Recovering/Resolving]

NARRATIVE: CASE EVENT DATE: 201704
